FAERS Safety Report 7550016-1 (Version None)
Quarter: 2011Q2

REPORT INFORMATION
  Report Type: 
  Country: None (occurrence: None)
  Receive Date: 20110615
  Receipt Date: 20110531
  Transmission Date: 20111010
  Serious: No
  Sender: FDA-Public Use
  Company Number: US-B.I. PHARMACEUTICALS,INC./RIDGEFIELD-2011-BP-06069BP

PATIENT
  Sex: Female

DRUGS (9)
  1. SYNTHROID [Concomitant]
  2. LIPITOR [Concomitant]
  3. NOVASC [Concomitant]
  4. AMAODERONE [Concomitant]
  5. TOPROL-XL [Concomitant]
  6. TRAMADOL HCL [Concomitant]
  7. PRADAXA [Suspect]
     Indication: ANTICOAGULANT THERAPY
  8. ZETIA [Concomitant]
  9. DIAURETEC [Concomitant]

REACTIONS (2)
  - THROAT IRRITATION [None]
  - DYSPEPSIA [None]
